FAERS Safety Report 18889838 (Version 1)
Quarter: 2021Q1

REPORT INFORMATION
  Report Type: Spontaneous
  Country: FR (occurrence: FR)
  Receive Date: 20210213
  Receipt Date: 20210213
  Transmission Date: 20210420
  Serious: Yes (Other)
  Sender: FDA-Public Use
  Company Number: NVSC2021FR029467

PATIENT
  Age: 71 Year
  Sex: Male

DRUGS (1)
  1. LEVOFLOXACIN. [Suspect]
     Active Substance: LEVOFLOXACIN
     Indication: CYSTITIS
     Dosage: UNK (NON PR?CIS?E)
     Route: 048
     Dates: start: 20191019, end: 20191024

REACTIONS (1)
  - Synovial disorder [Recovered/Resolved]

NARRATIVE: CASE EVENT DATE: 20191024
